FAERS Safety Report 23962678 (Version 2)
Quarter: 2024Q2

REPORT INFORMATION
  Report Type: Spontaneous
  Country: IN (occurrence: IN)
  Receive Date: 20240611
  Receipt Date: 20240625
  Transmission Date: 20240715
  Serious: Yes (Hospitalization)
  Sender: FDA-Public Use
  Company Number: IN-002147023-NVSC2024IN121965

PATIENT
  Sex: Female

DRUGS (1)
  1. BROLUCIZUMAB [Suspect]
     Active Substance: BROLUCIZUMAB
     Indication: Polypoidal choroidal vasculopathy
     Dosage: UNK, ONCE/SINGLE (MONTHLY/ QUARTERLY)
     Route: 031

REACTIONS (3)
  - Hyphaema [Not Recovered/Not Resolved]
  - Eye inflammation [Not Recovered/Not Resolved]
  - Vision blurred [Not Recovered/Not Resolved]
